FAERS Safety Report 24921770 (Version 2)
Quarter: 2025Q1

REPORT INFORMATION
  Report Type: Spontaneous
  Country: IN (occurrence: IN)
  Receive Date: 20250204
  Receipt Date: 20250210
  Transmission Date: 20250408
  Serious: Yes (Other)
  Sender: GLENMARK
  Company Number: IN-GLENMARK PHARMACEUTICALS-2025GMK097578

PATIENT

DRUGS (6)
  1. TACROLIMUS [Suspect]
     Active Substance: TACROLIMUS
     Indication: Immunosuppressant drug therapy
     Dosage: 4 MILLIGRAM, BID
     Route: 065
     Dates: start: 2023, end: 2024
  2. TACROLIMUS [Suspect]
     Active Substance: TACROLIMUS
     Dosage: 2.5 MILLIGRAM, BID, DOSE REDUCED
     Route: 065
     Dates: start: 2023, end: 2024
  3. TACROLIMUS [Suspect]
     Active Substance: TACROLIMUS
     Dosage: 1.5 MILLIGRAM, BID, DOSE REDUCED
     Route: 065
     Dates: start: 2023, end: 2024
  4. TACROLIMUS [Suspect]
     Active Substance: TACROLIMUS
     Dosage: 0.5 MILLIGRAM, BID, DOSE REDUCED
     Route: 065
     Dates: start: 2023, end: 2024
  5. MYCOPHENOLATE MOFETIL [Concomitant]
     Active Substance: MYCOPHENOLATE MOFETIL
     Indication: Immunosuppressant drug therapy
     Dosage: 500 MILLIGRAM, BID, MAINTENANCE
     Route: 065
  6. PREDNISOLONE [Concomitant]
     Active Substance: PREDNISOLONE
     Indication: Immunosuppressant drug therapy
     Route: 065
     Dates: start: 2023

REACTIONS (4)
  - Chronic allograft nephropathy [Unknown]
  - Renal transplant failure [Unknown]
  - Toxicity to various agents [Unknown]
  - Renal tubular injury [Unknown]
